FAERS Safety Report 9456735 (Version 1)
Quarter: 2013Q3

REPORT INFORMATION
  Report Type: Spontaneous
  Country: US (occurrence: US)
  Receive Date: 20130813
  Receipt Date: 20130813
  Transmission Date: 20140515
  Serious: Yes (Disabling)
  Sender: FDA-Public Use
  Company Number: US-PFIZER INC-2013234444

PATIENT
  Age: 60 Year
  Sex: Female
  Weight: 67.57 kg

DRUGS (2)
  1. SKELAXIN [Suspect]
     Indication: MUSCLE RELAXANT THERAPY
     Dosage: 800 MG, 2X/DAY
     Route: 048
     Dates: start: 201209
  2. SKELAXIN [Suspect]
     Indication: FIBROMYALGIA

REACTIONS (5)
  - Neuropathy peripheral [Not Recovered/Not Resolved]
  - Burning sensation [Not Recovered/Not Resolved]
  - Pain [Not Recovered/Not Resolved]
  - Plantar fasciitis [Not Recovered/Not Resolved]
  - Off label use [Unknown]
